FAERS Safety Report 4803841-1 (Version None)
Quarter: 2005Q4

REPORT INFORMATION
  Report Type: 
  Country: None (occurrence: None)
  Receive Date: 20051019
  Receipt Date: 20050309
  Transmission Date: 20060501
  Serious: Yes (Hospitalization)
  Sender: FDA-Public Use
  Company Number: US-MERCK-0503USA02000

PATIENT
  Age: 47 Year
  Sex: Male
  Weight: 105 kg

DRUGS (8)
  1. VIOXX [Suspect]
     Indication: BACK PAIN
     Route: 048
     Dates: start: 19991101, end: 20031001
  2. VIOXX [Suspect]
     Route: 048
     Dates: end: 20031001
  3. VIOXX [Suspect]
     Indication: ARTHRITIS
     Route: 048
     Dates: start: 19991101, end: 20031001
  4. VIOXX [Suspect]
     Route: 048
     Dates: end: 20031001
  5. FLEXERIL [Concomitant]
     Route: 048
  6. ROBAXIN [Concomitant]
     Route: 065
  7. HYDROCODONE BITARTRATE [Concomitant]
     Route: 065
     Dates: start: 19980101
  8. ZOCOR [Concomitant]
     Route: 048
     Dates: start: 19980101, end: 20030101

REACTIONS (7)
  - ANXIETY [None]
  - ARTERIOSCLEROSIS [None]
  - BLOOD TRIGLYCERIDES INCREASED [None]
  - CARDIAC ARREST [None]
  - GASTRIC DISORDER [None]
  - HYPERTENSION [None]
  - MYOCARDIAL INFARCTION [None]
